FAERS Safety Report 7774806-5 (Version None)
Quarter: 2011Q3

REPORT INFORMATION
  Report Type: 
  Country: None (occurrence: None)
  Receive Date: 20110923
  Receipt Date: 20110922
  Transmission Date: 20111222
  Serious: Yes (Hospitalization)
  Sender: FDA-Public Use
  Company Number: FR-ROCHE-765557

PATIENT
  Sex: Female

DRUGS (1)
  1. BONIVA [Suspect]
     Route: 042

REACTIONS (2)
  - OROPHARYNGEAL PAIN [None]
  - HEPATITIS [None]
